FAERS Safety Report 7450192-5 (Version None)
Quarter: 2011Q2

REPORT INFORMATION
  Report Type: 
  Country: None (occurrence: None)
  Receive Date: 20110428
  Receipt Date: 20110428
  Transmission Date: 20111010
  Serious: Yes (Other)
  Sender: FDA-Public Use
  Company Number: None

PATIENT
  Age: 56 Year
  Sex: Male

DRUGS (7)
  1. DEXAMETHASONE [Concomitant]
  2. PROCHLORPERAZINE TAB [Concomitant]
  3. PANTOPRAZOLE [Concomitant]
  4. PROAIR HFA [Concomitant]
  5. TAMSULOSIN HCL [Concomitant]
  6. REVLIMID [Suspect]
     Indication: MULTIPLE MYELOMA
     Dosage: 5 MG DAILY X21D/28D ORALLY
     Route: 048
     Dates: start: 20080201
  7. QVAR 40 [Concomitant]

REACTIONS (2)
  - NEUTROPENIA [None]
  - DEEP VEIN THROMBOSIS [None]
